FAERS Safety Report 26064163 (Version 1)
Quarter: 2025Q4

REPORT INFORMATION
  Report Type: Spontaneous
  Country: US (occurrence: US)
  Receive Date: 20251119
  Receipt Date: 20251119
  Transmission Date: 20260117
  Serious: Yes (Hospitalization)
  Sender: RADIUS PHARM
  Company Number: US-RADIUS HEALTH INC.-US-RADIUS-25051575

PATIENT
  Sex: Female

DRUGS (1)
  1. TYMLOS [Suspect]
     Active Substance: ABALOPARATIDE
     Indication: Senile osteoporosis
     Dosage: 80 MICROGRAM, QD
     Route: 058
     Dates: start: 202506

REACTIONS (12)
  - Loss of consciousness [Unknown]
  - Wrist fracture [Unknown]
  - Head injury [Unknown]
  - Joint injury [Unknown]
  - Limb injury [Unknown]
  - Trigger finger [Unknown]
  - Purpura [Recovered/Resolved]
  - Injection site rash [Unknown]
  - Pain in extremity [Unknown]
  - Fatigue [Unknown]
  - Pruritus [Unknown]
  - Dizziness [Unknown]

NARRATIVE: CASE EVENT DATE: 20250101
